FAERS Safety Report 25019097 (Version 2)
Quarter: 2025Q1

REPORT INFORMATION
  Report Type: Spontaneous
  Country: JP (occurrence: JP)
  Receive Date: 20250227
  Receipt Date: 20250313
  Transmission Date: 20250409
  Serious: Yes (Death)
  Sender: JOHNSON AND JOHNSON
  Company Number: JP-JNJFOC-20250258268

PATIENT
  Age: 84 Year
  Sex: Male
  Weight: 41 kg

DRUGS (1)
  1. ITRACONAZOLE [Suspect]
     Active Substance: ITRACONAZOLE
     Indication: Bronchopulmonary aspergillosis
     Route: 048

REACTIONS (3)
  - Death [Fatal]
  - Diarrhoea [Unknown]
  - Decreased appetite [Unknown]
